FAERS Safety Report 9173558 (Version 2)
Quarter: 2013Q2

REPORT INFORMATION
  Report Type: Spontaneous
  Country: US (occurrence: US)
  Receive Date: 20130320
  Receipt Date: 20130422
  Transmission Date: 20140414
  Serious: Yes (Hospitalization)
  Sender: FDA-Public Use
  Company Number: US-ELI_LILLY_AND_COMPANY-US201303003508

PATIENT
  Age: 45 Year
  Sex: Female

DRUGS (6)
  1. HUMATROPE [Suspect]
     Indication: GROWTH HORMONE DEFICIENCY
     Dosage: 0.2 MG, UNKNOWN
     Dates: end: 20120518
  2. HUMATROPE [Suspect]
     Dosage: 0.4MG, UNK
     Dates: start: 20120519, end: 20130203
  3. HUMATROPE [Suspect]
     Dosage: 0.2 MG, UNKNOWN
  4. OMEGA 3 [Concomitant]
  5. BABY ASPIRIN [Concomitant]
  6. PLAVIX [Concomitant]

REACTIONS (5)
  - Cerebrovascular accident [Unknown]
  - Cardiac disorder [Unknown]
  - Rash macular [Unknown]
  - Tinnitus [Unknown]
  - Burning sensation [Recovered/Resolved]
